FAERS Safety Report 8266252-5 (Version None)
Quarter: 2012Q1

REPORT INFORMATION
  Report Type: 
  Country: None (occurrence: None)
  Receive Date: 20120327
  Receipt Date: 20100504
  Transmission Date: 20120608
  Serious: Yes (Other)
  Sender: FDA-Public Use
  Company Number: PHHY2010US26168

PATIENT
  Age: 42 Year
  Sex: Male
  Weight: 80.7 kg

DRUGS (5)
  1. OMEPRAZOLE [Concomitant]
  2. GLEEVEC [Suspect]
     Indication: CHRONIC MYELOID LEUKAEMIA
     Dosage: 400 MG DAILY, ORAL
     Dates: start: 20090501, end: 20100329
  3. ALLPURINOL (ALLOPURINOL) [Concomitant]
  4. IRON (IRON) [Concomitant]
  5. MULTIVITIMIN (VITAMINS NOS) [Concomitant]

REACTIONS (1)
  - HEPATIC ENZYME INCREASED [None]
